FAERS Safety Report 4478953-5 (Version None)
Quarter: 2004Q4

REPORT INFORMATION
  Report Type: 
  Country: None (occurrence: None)
  Receive Date: 20040923
  Receipt Date: 20040804
  Transmission Date: 20050328
  Serious: No
  Sender: FDA-Public Use
  Company Number: 208250

PATIENT
  Age: 55 Year
  Sex: Female
  Weight: 83.4 kg

DRUGS (4)
  1. AVASTIN [Suspect]
     Indication: COLON CANCER
     Dosage: 420 MG, Q2W, INTRAVENOUS
     Route: 042
     Dates: start: 20040706, end: 20040804
  2. ALOXI (PALONOSETRON) [Concomitant]
  3. FLUOROURACIL [Concomitant]
  4. LEUCOVORIN (LEUCOVORIN CALCIUM) [Concomitant]

REACTIONS (1)
  - HYPERTENSION [None]
